FAERS Safety Report 5732583-3 (Version None)
Quarter: 2008Q2

REPORT INFORMATION
  Report Type: 
  Country: None (occurrence: None)
  Receive Date: 20080507
  Receipt Date: 20080429
  Transmission Date: 20081010
  Serious: Yes (Death, Hospitalization)
  Sender: FDA-Public Use
  Company Number: 163-20785-08041968

PATIENT
  Age: 17 Year
  Sex: Female

DRUGS (2)
  1. THALOMID [Suspect]
     Indication: MALIGNANT SOFT TISSUE NEOPLASM
     Dosage: 50, 250-300  MG, 1 IN 1 D, ORAL
     Route: 048
     Dates: start: 20080125, end: 20080401
  2. THALOMID [Suspect]
     Indication: MALIGNANT SOFT TISSUE NEOPLASM
     Dosage: 50, 250-300  MG, 1 IN 1 D, ORAL
     Route: 048
     Dates: start: 20080428

REACTIONS (1)
  - COLLAPSE OF LUNG [None]
